FAERS Safety Report 6017373-9 (Version None)
Quarter: 2008Q4

REPORT INFORMATION
  Report Type: 
  Country: None (occurrence: None)
  Receive Date: 20081223
  Receipt Date: 20081210
  Transmission Date: 20090506
  Serious: Yes (Hospitalization, Other)
  Sender: FDA-Public Use
  Company Number: PHHY2008JP31796

PATIENT
  Age: 76 Year
  Sex: Female

DRUGS (1)
  1. VOLTAREN [Suspect]
     Indication: PAIN
     Route: 048

REACTIONS (5)
  - EROSIVE DUODENITIS [None]
  - GASTRITIS [None]
  - HYPOPROTEINAEMIA [None]
  - JEJUNAL ULCER [None]
  - REFLUX OESOPHAGITIS [None]
